FAERS Safety Report 6828937-4 (Version None)
Quarter: 2010Q3

REPORT INFORMATION
  Report Type: 
  Country: None (occurrence: None)
  Receive Date: 20100706
  Receipt Date: 20080923
  Transmission Date: 20110219
  Serious: Yes (Other)
  Sender: FDA-Public Use
  Company Number: 2008AL010921

PATIENT
  Age: 9 Year
  Sex: Female

DRUGS (1)
  1. CETIRIZINE HCL [Suspect]
     Dosage: PO
     Route: 048
     Dates: start: 20080809

REACTIONS (3)
  - EYE PRURITUS [None]
  - HYPERSENSITIVITY [None]
  - PARAESTHESIA ORAL [None]
